FAERS Safety Report 14300434 (Version 4)
Quarter: 2020Q3

REPORT INFORMATION
  Report Type: Report from Study
  Country: IL (occurrence: IL)
  Receive Date: 20171219
  Receipt Date: 20180103
  Transmission Date: 20201105
  Serious: Yes (Death, Life-Threatening, Hospitalization)
  Sender: FDA-Public Use
  Company Number: IL-ASTRAZENECA-2017SF28391

PATIENT
  Age: 31028 Day
  Sex: Male

DRUGS (20)
  1. ETOPOSIDE. [Suspect]
     Active Substance: ETOPOSIDE
     Indication: SMALL CELL LUNG CANCER
     Route: 065
     Dates: start: 20171204, end: 20171204
  2. NACL [Concomitant]
     Active Substance: SODIUM CHLORIDE
     Indication: ASTHENIA
     Dosage: 1000.0ML ONCE/SINGLE ADMINISTRATION
     Route: 042
     Dates: start: 20171210, end: 20171210
  3. ETOPOSIDE. [Suspect]
     Active Substance: ETOPOSIDE
     Indication: SMALL CELL LUNG CANCER
     Route: 065
     Dates: start: 20171205, end: 20171205
  4. CARBOPLATIN. [Suspect]
     Active Substance: CARBOPLATIN
     Indication: SMALL CELL LUNG CANCER
     Dosage: 5 AUC
     Route: 065
     Dates: start: 20171204, end: 20171204
  5. FUSID [FUROSEMIDE] [Concomitant]
     Active Substance: FUROSEMIDE
     Indication: ATRIAL FIBRILLATION
     Route: 042
  6. SERETIDE [Concomitant]
     Active Substance: FLUTICASONE PROPIONATE\SALMETEROL XINAFOATE
     Indication: CHRONIC OBSTRUCTIVE PULMONARY DISEASE
     Route: 055
  7. NACL [Concomitant]
     Active Substance: SODIUM CHLORIDE
     Indication: HYPONATRAEMIA
     Dosage: 1000.0ML ONCE/SINGLE ADMINISTRATION
     Route: 042
     Dates: start: 20171210, end: 20171210
  8. ETOPOSIDE. [Suspect]
     Active Substance: ETOPOSIDE
     Indication: SMALL CELL LUNG CANCER
     Route: 065
     Dates: start: 20171206, end: 20171206
  9. DEXAMETHASONE. [Concomitant]
     Active Substance: DEXAMETHASONE
     Indication: PREMEDICATION
     Dosage: 20 MG
     Route: 042
     Dates: start: 20171204
  10. ZOFRAN [Concomitant]
     Active Substance: ONDANSETRON HYDROCHLORIDE
     Indication: PREMEDICATION
     Dosage: 8 MG
     Route: 042
     Dates: start: 20171204
  11. AMIODACORE [Concomitant]
     Indication: ATRIAL FIBRILLATION
     Route: 048
  12. AEROVENT [Concomitant]
     Indication: CHRONIC OBSTRUCTIVE PULMONARY DISEASE
     Route: 055
  13. AVILAC [Concomitant]
     Indication: CONSTIPATION
     Route: 048
     Dates: start: 20171210
  14. TREMELIMUMAB. [Suspect]
     Active Substance: TREMELIMUMAB
     Indication: SMALL CELL LUNG CANCER
     Route: 042
     Dates: start: 20171204, end: 20171204
  15. FLIXOTIDE [Concomitant]
     Active Substance: FLUTICASONE PROPIONATE
     Indication: CHRONIC OBSTRUCTIVE PULMONARY DISEASE
     Route: 055
  16. DURVALUMAB. [Suspect]
     Active Substance: DURVALUMAB
     Indication: SMALL CELL LUNG CANCER
     Route: 042
     Dates: start: 20171204, end: 20171204
  17. ELTROXIN [Concomitant]
     Active Substance: LEVOTHYROXINE
     Indication: HYPOTHYROIDISM
     Dosage: 50 UG 5 DAYS PER WEEK
     Route: 048
  18. SIMVACOR [Concomitant]
     Active Substance: SIMVASTATIN
     Indication: HYPERLIPIDAEMIA
     Route: 048
  19. COUMADIN [Concomitant]
     Active Substance: WARFARIN SODIUM
     Indication: PROPHYLAXIS
     Route: 048
  20. PARAFFIN, LIQUID [Concomitant]
     Indication: CONSTIPATION
     Route: 048
     Dates: start: 20171210

REACTIONS (1)
  - Febrile neutropenia [Fatal]

NARRATIVE: CASE EVENT DATE: 20171214
